FAERS Safety Report 6935367-3 (Version None)
Quarter: 2010Q3

REPORT INFORMATION
  Report Type: 
  Country: None (occurrence: None)
  Receive Date: 20100823
  Receipt Date: 20100816
  Transmission Date: 20110219
  Serious: Yes (Hospitalization)
  Sender: FDA-Public Use
  Company Number: US-BIOGENIDEC-2010BI027348

PATIENT
  Age: 57 Year
  Sex: Male
  Weight: 88 kg

DRUGS (7)
  1. TYSABRI [Suspect]
     Indication: MULTIPLE SCLEROSIS
     Route: 042
     Dates: start: 20080829
  2. ATORVASTATIN [Concomitant]
     Indication: HYPERLIPIDAEMIA
     Route: 048
     Dates: start: 20020101
  3. ASPIRIN [Concomitant]
     Indication: CARDIOVASCULAR EVENT PROPHYLAXIS
     Route: 048
  4. METHYLPHENIDATE [Concomitant]
     Indication: FATIGUE
     Route: 048
     Dates: start: 20040602
  5. DISOPYRAMIDE [Concomitant]
     Indication: PRESYNCOPE
     Route: 048
     Dates: start: 20021201
  6. BACLOFEN [Concomitant]
     Indication: MUSCLE SPASTICITY
     Route: 048
     Dates: start: 20100706
  7. DARIFENACIN [Concomitant]
     Indication: URINARY RETENTION
     Route: 048
     Dates: start: 20080111

REACTIONS (2)
  - DYSURIA [None]
  - URINARY TRACT INFECTION [None]
